FAERS Safety Report 25162451 (Version 1)
Quarter: 2025Q2

REPORT INFORMATION
  Report Type: Report from Study
  Country: IT (occurrence: IT)
  Receive Date: 20250404
  Receipt Date: 20250404
  Transmission Date: 20250717
  Serious: Yes (Other)
  Sender: TEVA
  Company Number: None

PATIENT
  Age: 8 Year
  Sex: Male
  Weight: 28 kg

DRUGS (1)
  1. METHOTREXATE [Suspect]
     Active Substance: METHOTREXATE
     Indication: Extraskeletal osteosarcoma
     Dosage: METHOTREXATE TEVA
     Route: 042
     Dates: start: 20240216, end: 20240301

REACTIONS (2)
  - Neutropenia [Recovered/Resolved]
  - Alanine aminotransferase increased [Recovering/Resolving]

NARRATIVE: CASE EVENT DATE: 20240223
